FAERS Safety Report 10137102 (Version 1)
Quarter: 2014Q2

REPORT INFORMATION
  Report Type: Spontaneous
  Country: TW (occurrence: None)
  Receive Date: 20140425
  Receipt Date: 20140425
  Transmission Date: 20141212
  Serious: Yes (Hospitalization)
  Sender: FDA-Public Use
  Company Number: TW-ALKEM-000568

PATIENT
  Age: 58 Year
  Sex: Male

DRUGS (2)
  1. QUETIAPINE [Suspect]
     Indication: SCHIZOPHRENIA
  2. VALPROIC ACID [Suspect]
     Indication: SCHIZOPHRENIA

REACTIONS (3)
  - Pancreatitis acute [None]
  - Blood calcium decreased [None]
  - Gallbladder polyp [None]
